FAERS Safety Report 19580322 (Version 2)
Quarter: 2021Q3

REPORT INFORMATION
  Report Type: Spontaneous
  Country: JP (occurrence: JP)
  Receive Date: 20210719
  Receipt Date: 20210810
  Transmission Date: 20211014
  Serious: Yes (Death, Hospitalization, Other)
  Sender: FDA-Public Use
  Company Number: JP-BRISTOL-MYERS SQUIBB COMPANY-BMS-2018-106811

PATIENT
  Age: 51 Year
  Sex: Male
  Weight: 43.5 kg

DRUGS (4)
  1. OPDIVO [Suspect]
     Active Substance: NIVOLUMAB
     Indication: METASTATIC RENAL CELL CARCINOMA
     Dosage: 240 MILLIGRAM, Q3WK
     Route: 041
     Dates: start: 20180921, end: 20181117
  2. YERVOY [Suspect]
     Active Substance: IPILIMUMAB
     Indication: METASTATIC RENAL CELL CARCINOMA
     Dosage: 50 MILLIGRAM, Q3WK
     Route: 041
     Dates: start: 20180921, end: 20181117
  3. FENTOS [Concomitant]
     Active Substance: FENTANYL
     Indication: CANCER PAIN
     Dosage: UNK
     Route: 065
     Dates: start: 20180815, end: 2019
  4. INLYTA [Suspect]
     Active Substance: AXITINIB
     Indication: METASTATIC RENAL CELL CARCINOMA
     Dosage: 10 MILLIGRAM, Q12H
     Route: 048
     Dates: start: 20181220, end: 20190215

REACTIONS (7)
  - Haematuria [Unknown]
  - Prescribed overdose [Unknown]
  - Malignant neoplasm progression [Fatal]
  - Hepatic enzyme increased [Recovered/Resolved]
  - Diarrhoea [Unknown]
  - Purpura [Unknown]
  - Stomatitis [Unknown]

NARRATIVE: CASE EVENT DATE: 20181024
